FAERS Safety Report 5948248-9 (Version None)
Quarter: 2008Q4

REPORT INFORMATION
  Report Type: 
  Country: None (occurrence: None)
  Receive Date: 20081110
  Receipt Date: 20081110
  Transmission Date: 20090506
  Serious: Yes (Life-Threatening, Other)
  Sender: FDA-Public Use
  Company Number: None

PATIENT
  Age: 41 Year
  Sex: Female
  Weight: 56.6996 kg

DRUGS (1)
  1. SEROQUEL [Suspect]
     Dosage: 1 OR 2 DAILY PO
     Route: 047
     Dates: start: 20080915, end: 20081025

REACTIONS (12)
  - ABNORMAL BEHAVIOUR [None]
  - AGGRESSION [None]
  - ANGER [None]
  - ECONOMIC PROBLEM [None]
  - FACE INJURY [None]
  - FEELING ABNORMAL [None]
  - ILL-DEFINED DISORDER [None]
  - IMPRISONMENT [None]
  - MOOD SWINGS [None]
  - PERSONALITY CHANGE [None]
  - PHYSICAL ASSAULT [None]
  - PSYCHOTIC BEHAVIOUR [None]
